FAERS Safety Report 8550281-8 (Version None)
Quarter: 2012Q3

REPORT INFORMATION
  Report Type: 
  Country: None (occurrence: None)
  Receive Date: 20120730
  Receipt Date: 20120725
  Transmission Date: 20120928
  Serious: Yes (Other)
  Sender: FDA-Public Use
  Company Number: PHEH2012US014677

PATIENT
  Sex: Female

DRUGS (2)
  1. POTASSIUM CHLORIDE [Concomitant]
  2. DIOVAN HCT [Suspect]

REACTIONS (1)
  - RENAL CANCER [None]
